FAERS Safety Report 12985929 (Version 1)
Quarter: 2016Q4

REPORT INFORMATION
  Report Type: Spontaneous
  Country: US (occurrence: US)
  Receive Date: 20161130
  Receipt Date: 20161130
  Transmission Date: 20170207
  Serious: Yes (Other)
  Sender: FDA-Public Use
  Company Number: US-CLINIGEN GROUP PLC/ CLINIGEN HEALTHCARE LTD-E2B_00003090

PATIENT
  Age: 28 Year
  Sex: Male

DRUGS (9)
  1. FOSCARNET?SODIUM [Suspect]
     Active Substance: FOSCARNET SODIUM
     Indication: CYTOMEGALOVIRUS INFECTION
     Route: 042
     Dates: start: 19910719
  2. CLOTRIMAZOLE. [Concomitant]
     Active Substance: CLOTRIMAZOLE
     Route: 065
  3. GM-CSF [Concomitant]
     Active Substance: GRANULOCYTE-MACROPHAGE COLONY-STIMULATING FACTOR
     Route: 065
  4. METHADONE [Concomitant]
     Active Substance: METHADONE HYDROCHLORIDE
     Route: 065
  5. AMITRIPTYLINE [Concomitant]
     Active Substance: AMITRIPTYLINE
     Route: 065
  6. PRIMAQUINE [Concomitant]
     Active Substance: PRIMAQUINE PHOSPHATE
     Route: 065
  7. FOSCARNET?SODIUM [Suspect]
     Active Substance: FOSCARNET SODIUM
     Route: 042
     Dates: start: 19910731
  8. MULTIVITAMINS [Concomitant]
     Active Substance: VITAMINS
     Route: 065
  9. CLINDAMYCIN. [Concomitant]
     Active Substance: CLINDAMYCIN
     Route: 065

REACTIONS (7)
  - Tachycardia [Not Recovered/Not Resolved]
  - Pleural effusion [Not Recovered/Not Resolved]
  - Candida infection [Not Recovered/Not Resolved]
  - Hyponatraemia [Not Recovered/Not Resolved]
  - Pericardial effusion [Not Recovered/Not Resolved]
  - Hyperkalaemia [Not Recovered/Not Resolved]
  - Leukopenia [Not Recovered/Not Resolved]

NARRATIVE: CASE EVENT DATE: 199101
